FAERS Safety Report 12535952 (Version 1)
Quarter: 2016Q3

REPORT INFORMATION
  Report Type: Spontaneous
  Country: US (occurrence: None)
  Receive Date: 20160706
  Receipt Date: 20160706
  Transmission Date: 20161109
  Serious: No
  Sender: FDA-Public Use
  Company Number: None

PATIENT
  Age: 74 Year
  Sex: Male

DRUGS (5)
  1. ASPIRIN. [Concomitant]
     Active Substance: ASPIRIN
  2. CENTRUM SILVER MULTI VIT [Concomitant]
  3. CIPROFLOXACIN HCL 500 MG [Suspect]
     Active Substance: CIPROFLOXACIN HYDROCHLORIDE
     Indication: PROSTATIC SPECIFIC ANTIGEN ABNORMAL
     Dosage: 500 MG 1 TABLET 2 TIMES A DAY BY MOUTH
     Route: 048
     Dates: start: 20160512, end: 20160516
  4. LISINOPRIL. [Concomitant]
     Active Substance: LISINOPRIL
  5. TAMSULOSIN HCL [Concomitant]
     Active Substance: TAMSULOSIN

REACTIONS (1)
  - Musculoskeletal pain [None]

NARRATIVE: CASE EVENT DATE: 20160614
